FAERS Safety Report 24685564 (Version 1)
Quarter: 2024Q4

REPORT INFORMATION
  Report Type: Spontaneous
  Country: CN (occurrence: CN)
  Receive Date: 20241202
  Receipt Date: 20241202
  Transmission Date: 20250115
  Serious: Yes (Life-Threatening, Hospitalization)
  Sender: AMGEN
  Company Number: CN-MLMSERVICE-20241114-PI255485-00270-3

PATIENT
  Age: 52 Year
  Sex: Male

DRUGS (12)
  1. ETANERCEPT [Suspect]
     Active Substance: ETANERCEPT
     Indication: Toxic epidermal necrolysis
     Dosage: UNK (HIGH-DOSE)
     Route: 065
  2. METHYLPREDNISOLONE SODIUM SUCCINATE [Suspect]
     Active Substance: METHYLPREDNISOLONE SODIUM SUCCINATE
     Indication: Toxic epidermal necrolysis
     Dosage: UNK (HIGH-DOSE)
     Route: 042
  3. PACLITAXEL [Suspect]
     Active Substance: PACLITAXEL
     Indication: Toxic epidermal necrolysis
     Dosage: UNK
     Route: 065
  4. PACLITAXEL [Suspect]
     Active Substance: PACLITAXEL
     Indication: Rhabdomyosarcoma
     Dosage: UNK
     Route: 065
  5. CISPLATIN [Suspect]
     Active Substance: CISPLATIN
     Indication: Rhabdomyosarcoma
     Dosage: UNK
     Route: 065
  6. CISPLATIN [Suspect]
     Active Substance: CISPLATIN
     Indication: Toxic epidermal necrolysis
  7. FLUOROURACIL [Suspect]
     Active Substance: FLUOROURACIL
     Indication: Rhabdomyosarcoma
     Dosage: UNK
     Route: 065
  8. FLUOROURACIL [Suspect]
     Active Substance: FLUOROURACIL
     Indication: Toxic epidermal necrolysis
  9. TORIPALIMAB [Suspect]
     Active Substance: TORIPALIMAB
     Indication: Rhabdomyosarcoma
     Dosage: UNK
     Route: 065
  10. TORIPALIMAB [Suspect]
     Active Substance: TORIPALIMAB
     Indication: Toxic epidermal necrolysis
  11. HUMAN IMMUNOGLOBULIN G [Suspect]
     Active Substance: HUMAN IMMUNOGLOBULIN G
     Indication: Toxic epidermal necrolysis
     Dosage: UNK (HIGH-DOSE)
     Route: 042
  12. POTASSIUM PERMANGANATE [Concomitant]
     Active Substance: POTASSIUM PERMANGANATE
     Indication: Supportive care
     Dosage: BATHS

REACTIONS (3)
  - Aspergillus infection [Recovered/Resolved]
  - Fungal skin infection [Recovered/Resolved]
  - Off label use [Unknown]
